FAERS Safety Report 20850292 (Version 3)
Quarter: 2023Q1

REPORT INFORMATION
  Report Type: Spontaneous
  Country: US (occurrence: US)
  Receive Date: 20220519
  Receipt Date: 20230216
  Transmission Date: 20230417
  Serious: No
  Sender: FDA-Public Use
  Company Number: US-PFIZER INC-202200701347

PATIENT
  Age: 67 Year
  Sex: Female
  Weight: 78.02 kg

DRUGS (16)
  1. IBRANCE [Suspect]
     Active Substance: PALBOCICLIB
     Indication: Breast cancer female
     Dosage: 125 MG, CYCLIC (1 TAB EVERY DAY FOR 21 DAYS THEN TAKE 7 DAYS OFF )
     Dates: start: 20200305
  2. IBRANCE [Suspect]
     Active Substance: PALBOCICLIB
     Dosage: 125 MG, CYCLIC (1 TAB EVERY DAY FOR 21 DAYS THEN TAKE 7 DAYS OFF )
     Route: 048
     Dates: end: 202302
  3. CARDIA [AJMALINE] [Concomitant]
     Dosage: 240 MG
  4. BIOTIN [Concomitant]
     Active Substance: BIOTIN
     Dosage: 10000 UG SOFT GEL
  5. METFORMIN [Concomitant]
     Active Substance: METFORMIN HYDROCHLORIDE
     Dosage: 1000 MG
  6. PROBIOTICS NOS [Concomitant]
     Active Substance: PROBIOTICS NOS
     Dosage: UNK
  7. VITAMIN B12 [Concomitant]
     Active Substance: CYANOCOBALAMIN
     Dosage: 1000 UG
  8. ANASTROZOLE [Concomitant]
     Active Substance: ANASTROZOLE
     Dosage: 1 MG
  9. CARVEDILOL [Concomitant]
     Active Substance: CARVEDILOL
     Dosage: 12.5 MG
  10. LEVOTHYROXINE SODIUM [Concomitant]
     Active Substance: LEVOTHYROXINE SODIUM
     Dosage: 25 UG
  11. LISINOPRIL [Concomitant]
     Active Substance: LISINOPRIL
     Dosage: 10 MG
  12. ALLOPURINOL [Concomitant]
     Active Substance: ALLOPURINOL
     Dosage: 100 MG
  13. ATORVASTATIN [Concomitant]
     Active Substance: ATORVASTATIN
     Dosage: 10 MG
  14. CARTIA XT [Concomitant]
     Active Substance: DILTIAZEM HYDROCHLORIDE
     Dosage: 240 MG GXT
  15. CALCIUM [Concomitant]
     Active Substance: CALCIUM
     Dosage: 600MG W/D TABLETS G/S
  16. IRON [Concomitant]
     Active Substance: IRON
     Dosage: 325 MG

REACTIONS (2)
  - Blood iron decreased [Unknown]
  - Neoplasm progression [Unknown]

NARRATIVE: CASE EVENT DATE: 20220401
